FAERS Safety Report 10279486 (Version 3)
Quarter: 2014Q3

REPORT INFORMATION
  Report Type: Report from Study
  Country: CN (occurrence: None)
  Receive Date: 20140630
  Receipt Date: 20140826
  Transmission Date: 20150326
  Serious: Yes (Hospitalization, Congenital Anomaly)
  Sender: FDA-Public Use
  Company Number: 7300002

PATIENT
  Age: 4 Month
  Sex: Female

DRUGS (1)
  1. EUTHYROX 50 MCG (LEVOTHYROXINE SODIUM) (TABLET) (LEVOTHYROXINE SODIUM) [Suspect]
     Active Substance: LEVOTHYROXINE SODIUM
     Indication: POST PROCEDURAL HYPOTHYROIDISM
     Dosage: 2 DF (2 DF, 1 IN 1 D), PRODUCT TAKEN BY MOTHER

REACTIONS (6)
  - Caesarean section [None]
  - Foetal exposure during pregnancy [None]
  - Talipes [None]
  - Nervous system disorder [None]
  - Dysplasia [None]
  - Hypothyroidism [None]

NARRATIVE: CASE EVENT DATE: 2014
